FAERS Safety Report 5523883-0 (Version None)
Quarter: 2007Q4

REPORT INFORMATION
  Report Type: 
  Country: None (occurrence: None)
  Receive Date: 20071121
  Receipt Date: 20071116
  Transmission Date: 20080405
  Serious: Yes (Hospitalization)
  Sender: FDA-Public Use
  Company Number: US-SHR-US-2007-023465

PATIENT
  Age: 58 Year
  Sex: Male
  Weight: 136 kg

DRUGS (6)
  1. BETASERON [Suspect]
     Indication: SECONDARY PROGRESSIVE MULTIPLE SCLEROSIS
     Route: 058
     Dates: start: 19970425, end: 20040401
  2. BETASERON [Suspect]
     Route: 058
     Dates: start: 20050224, end: 20060529
  3. BETASERON [Suspect]
     Route: 058
     Dates: start: 20060808, end: 20070605
  4. BETASERON [Suspect]
     Dosage: 8 MIU, EVERY 2D
     Route: 058
     Dates: start: 20070622
  5. INSULIN [Concomitant]
     Dates: start: 20070601
  6. ASPIRIN [Concomitant]
     Dosage: UNK, 1X/DAY

REACTIONS (4)
  - BALANCE DISORDER [None]
  - DEPRESSED MOOD [None]
  - MULTIPLE SCLEROSIS [None]
  - STRESS [None]
